FAERS Safety Report 9001604 (Version 1)
Quarter: 2013Q1

REPORT INFORMATION
  Report Type: Spontaneous
  Country: US (occurrence: US)
  Receive Date: 20130107
  Receipt Date: 20130107
  Transmission Date: 20140127
  Serious: Yes (Other)
  Sender: FDA-Public Use
  Company Number: US-009507513-1301USA001283

PATIENT
  Age: 73 Year
  Sex: Female

DRUGS (5)
  1. SINGULAIR [Suspect]
     Dosage: 2 PUFFS BID, INHALED
     Route: 055
  2. LORATADINE [Suspect]
     Dosage: 1 TAB, QAM
     Route: 048
  3. ALENDRONATE SODIUM / CHOLCALCIFEROL [Suspect]
     Dosage: 1 TAB, NOCT
     Route: 048
  4. SEREVENT DISKUS [Suspect]
     Dosage: 2 PUFF, BID, INHALED
     Route: 055
  5. FLOVENT [Suspect]
     Dosage: 200 MG, BID
     Route: 055

REACTIONS (3)
  - Laryngitis [Unknown]
  - Dysphonia [Unknown]
  - Gastrooesophageal reflux disease [Unknown]
